FAERS Safety Report 6204547-7 (Version None)
Quarter: 2009Q2

REPORT INFORMATION
  Report Type: 
  Country: None (occurrence: None)
  Receive Date: 20090527
  Receipt Date: 20090424
  Transmission Date: 20091009
  Serious: Yes (Hospitalization, Other)
  Sender: FDA-Public Use
  Company Number: IE-JNJFOC-20090104780

PATIENT
  Sex: Female
  Weight: 85 kg

DRUGS (8)
  1. TOPAMAX [Suspect]
     Indication: EPILEPSY
     Route: 048
  2. STEROIDS [Concomitant]
     Indication: LOWER RESPIRATORY TRACT INFECTION
     Route: 048
  3. YASMIN [Concomitant]
     Indication: CONTRACEPTION
     Route: 048
  4. QUETIAPINE FUMARATE [Concomitant]
     Route: 048
  5. QUETIAPINE FUMARATE [Concomitant]
     Route: 048
  6. QUETIAPINE FUMARATE [Concomitant]
     Route: 048
  7. CITALOPRAM HYDROBROMIDE [Concomitant]
  8. CITALOPRAM HYDROBROMIDE [Concomitant]

REACTIONS (3)
  - DELUSION [None]
  - DEPRESSION [None]
  - PERSECUTORY DELUSION [None]
